FAERS Safety Report 5518896-9 (Version None)
Quarter: 2007Q4

REPORT INFORMATION
  Report Type: 
  Country: None (occurrence: None)
  Receive Date: 20071114
  Receipt Date: 20071106
  Transmission Date: 20080405
  Serious: Yes (Other)
  Sender: FDA-Public Use
  Company Number: 2005-07-2134

PATIENT
  Age: 18 Year
  Sex: Male
  Weight: 72.5755 kg

DRUGS (3)
  1. CORICIDIN [Suspect]
     Indication: DRUG USE FOR UNKNOWN INDICATION
     Dosage: PO
     Route: 048
  2. NARCOTIC AGONIST [Concomitant]
  3. ANALGESIC (NOS) [Concomitant]

REACTIONS (12)
  - AGGRESSION [None]
  - AGITATION [None]
  - AMNESIA [None]
  - ANGER [None]
  - DRUG DEPENDENCE [None]
  - EDUCATIONAL PROBLEM [None]
  - HALLUCINATION [None]
  - INCORRECT DOSE ADMINISTERED [None]
  - OVERDOSE [None]
  - PSYCHOMOTOR HYPERACTIVITY [None]
  - PSYCHOTIC DISORDER [None]
  - SEXUAL ABUSE [None]
